FAERS Safety Report 22003311 (Version 3)
Quarter: 2023Q1

REPORT INFORMATION
  Report Type: Report from Study
  Country: CA (occurrence: CA)
  Receive Date: 20230217
  Receipt Date: 20230227
  Transmission Date: 20230418
  Serious: Yes (Hospitalization, Other)
  Sender: FDA-Public Use
  Company Number: CA-ABBVIE-22K-028-4433629-00

PATIENT
  Sex: Female

DRUGS (5)
  1. SKYRIZI [Suspect]
     Active Substance: RISANKIZUMAB-RZAA
     Indication: Psoriasis
     Route: 058
     Dates: start: 20210803, end: 20210803
  2. SKYRIZI [Suspect]
     Active Substance: RISANKIZUMAB-RZAA
     Dosage: DOSE INCREASED
     Route: 058
  3. SKYRIZI [Suspect]
     Active Substance: RISANKIZUMAB-RZAA
     Route: 058
  4. BENADRYL [Concomitant]
     Active Substance: DIPHENHYDRAMINE HYDROCHLORIDE
     Indication: Pruritus
  5. DILAUDID [Concomitant]
     Active Substance: HYDROMORPHONE HYDROCHLORIDE
     Indication: Product used for unknown indication
     Dosage: 1X2MG TABLETS TO TAKE TWICE DAILY

REACTIONS (34)
  - Pain [Recovering/Resolving]
  - Vomiting projectile [Unknown]
  - Urinary retention [Unknown]
  - Constipation [Unknown]
  - Pain [Unknown]
  - Tooth fracture [Unknown]
  - Contusion [Unknown]
  - Skin exfoliation [Unknown]
  - Malaise [Unknown]
  - Stress [Unknown]
  - Addison^s disease [Unknown]
  - Migraine [Unknown]
  - Drug hypersensitivity [Unknown]
  - Fall [Unknown]
  - Injection site bruising [Not Recovered/Not Resolved]
  - Injection site pain [Unknown]
  - Dizziness [Unknown]
  - Therapeutic response shortened [Unknown]
  - Amblyopia [Unknown]
  - Eye disorder [Unknown]
  - Posture abnormal [Unknown]
  - Immunosuppression [Unknown]
  - Dehydration [Unknown]
  - Dry mouth [Unknown]
  - Blood pressure increased [Unknown]
  - Suicidal ideation [Unknown]
  - Pruritus [Unknown]
  - Adverse food reaction [Unknown]
  - Weight loss poor [Unknown]
  - Menopause [Unknown]
  - Cough [Unknown]
  - Abdominal discomfort [Not Recovered/Not Resolved]
  - Abdominal pain upper [Unknown]
  - Gastrointestinal pain [Not Recovered/Not Resolved]

NARRATIVE: CASE EVENT DATE: 20220101
